FAERS Safety Report 15438844 (Version 1)
Quarter: 2018Q3

REPORT INFORMATION
  Report Type: Spontaneous
  Country: DE (occurrence: DE)
  Receive Date: 20180928
  Receipt Date: 20180928
  Transmission Date: 20181010
  Serious: Yes (Hospitalization, Other)
  Sender: FDA-Public Use
  Company Number: DE-AUROBINDO-AUR-APL-2017-04556

PATIENT
  Age: 68 Year
  Sex: Male

DRUGS (20)
  1. TAMSULOSIN HARDCAPSULE [Suspect]
     Active Substance: TAMSULOSIN
     Indication: BENIGN PROSTATIC HYPERPLASIA
     Dosage: 0.4 MILLIGRAM, ONCE A DAY, INGESTION FOR MANY YEARS
     Route: 048
  2. METHIZOL [Concomitant]
     Active Substance: METHIMAZOLE
     Indication: HYPERTHYROIDISM
     Dosage: DAILY DOSE: 5 MG MILLIGRAM(S) EVERY DAY
     Route: 048
     Dates: start: 20080201
  3. ALDACTONE [Concomitant]
     Active Substance: SPIRONOLACTONE
     Indication: CARDIAC FAILURE
     Dosage: 25 MILLIGRAM, ONCE A DAY
     Route: 065
     Dates: start: 20080601
  4. LOCOL                              /01224502/ [Concomitant]
     Active Substance: FLUVASTATIN SODIUM
     Indication: HYPERLIPIDAEMIA
     Dosage: 80 MG ONCE DAILY
     Route: 048
     Dates: start: 20080601
  5. NEXAVAR [Suspect]
     Active Substance: SORAFENIB
     Indication: METASTATIC RENAL CELL CARCINOMA
     Dosage: 800 MG DAILY, DOSAGE FORM: 82, APPLICATION RESTARTED: 10?SEP?2008
     Route: 048
     Dates: start: 20080608, end: 20080809
  6. ASPIRIN. [Concomitant]
     Active Substance: ASPIRIN
     Indication: CORONARY ARTERY DISEASE
     Dosage: DAILY DOSE: 100 MG MILLIGRAM(S) EVERY DAY
     Route: 048
     Dates: start: 20001101
  7. ZOMETA [Suspect]
     Active Substance: ZOLEDRONIC ACID
     Indication: METASTASES TO BONE
     Dosage: DAILY DOSE: 4 MG MILLIGRAM(S) EVERY MONTH
     Route: 017
     Dates: start: 20080618, end: 20080716
  8. DIGITOXIN [Concomitant]
     Active Substance: DIGITOXIN
     Indication: CARDIAC FAILURE
     Dosage: DAILY DOSE: 0.07 MG MILLIGRAM(S) EVERY DAY
     Route: 048
     Dates: start: 20080601
  9. AMARYL [Concomitant]
     Active Substance: GLIMEPIRIDE
     Indication: TYPE 2 DIABETES MELLITUS
     Dosage: DAILY DOSE: 1 MG MILLIGRAM(S) EVERY DAY
     Route: 048
     Dates: start: 20080201
  10. GLUCOBAY [Concomitant]
     Active Substance: ACARBOSE
     Indication: TYPE 2 DIABETES MELLITUS
     Dosage: DAILY DOSE: 150 MG MILLIGRAM(S) EVERY DAY
     Route: 048
     Dates: start: 1996
  11. AMLODIPINE [Suspect]
     Active Substance: AMLODIPINE BESYLATE
     Indication: HYPERTENSION
     Dosage: DAILY DOSE: 10 MG MILLIGRAM(S) EVERY DAY
     Route: 048
     Dates: start: 20080601
  12. ACERBON [Suspect]
     Active Substance: LISINOPRIL
     Indication: HYPERTENSION
     Dosage: 20 MG IN THE MORNING, 10 MG IN THE EVENING
     Route: 048
     Dates: start: 1996, end: 20081027
  13. NEXAVAR [Suspect]
     Active Substance: SORAFENIB
     Dosage: DOSAGE FORM: 82
     Route: 048
     Dates: start: 20080910
  14. CLOPIDOGREL [Concomitant]
     Active Substance: CLOPIDOGREL BISULFATE
     Indication: STENT PLACEMENT
     Dosage: DAILY DOSE: 75 MG MILLIGRAM(S) EVERY DAY
     Route: 048
     Dates: start: 20080301
  15. PENTALONG [Concomitant]
     Active Substance: PENTAERYTHRITOL TETRANITRATE
     Indication: CORONARY ARTERY DISEASE
     Dosage: DAILY DOSE: 240 MG MILLIGRAM(S) EVERY DAY
     Route: 048
     Dates: start: 20060601
  16. NEXAVAR [Suspect]
     Active Substance: SORAFENIB
     Dosage: 1 DF IN THE MORNING AND 2 DF IN THE EVENING
     Route: 048
     Dates: start: 20080709, end: 20080809
  17. TOREM                              /01036501/ [Concomitant]
     Active Substance: TORSEMIDE
     Indication: CARDIAC FAILURE
     Dosage: 5 MILLIGRAM, ONCE A DAY
     Route: 048
     Dates: start: 20080601
  18. PARACETAMOL [Concomitant]
     Active Substance: ACETAMINOPHEN
     Indication: PAIN
     Dosage: DAILY DOSE: 2000 MG MILLIGRAM(S) EVERY DAY
     Route: 048
     Dates: start: 20080807, end: 20080809
  19. BELOC ZOK [Concomitant]
     Active Substance: METOPROLOL SUCCINATE
     Indication: ARRHYTHMIA
     Dosage: DAILY DOSE: 190 MG MILLIGRAM(S) EVERY DAY
     Route: 048
     Dates: start: 20001001
  20. BELOC ZOK [Concomitant]
     Active Substance: METOPROLOL SUCCINATE
     Dosage: 95 MILLIGRAM, ONCE A DAY
     Route: 048
     Dates: start: 20001001

REACTIONS (16)
  - Dysphagia [Unknown]
  - C-reactive protein increased [Unknown]
  - Blood sodium decreased [Unknown]
  - Swollen tongue [Unknown]
  - Mouth swelling [Unknown]
  - Swollen tongue [Recovered/Resolved]
  - Platelet count increased [Unknown]
  - Albumin urine present [Unknown]
  - Haemoglobin decreased [Unknown]
  - Angioedema [Recovered/Resolved]
  - Red blood cell sedimentation rate increased [Unknown]
  - Dysphagia [Recovered/Resolved]
  - Lip swelling [Recovered/Resolved]
  - Oedema mucosal [Recovered/Resolved]
  - Speech disorder [Recovered/Resolved]
  - Gamma-glutamyltransferase increased [Unknown]

NARRATIVE: CASE EVENT DATE: 20080810
